FAERS Safety Report 8056512-5 (Version None)
Quarter: 2012Q1

REPORT INFORMATION
  Report Type: 
  Country: None (occurrence: None)
  Receive Date: 20120119
  Receipt Date: 20120109
  Transmission Date: 20120608
  Serious: Yes (Other)
  Sender: FDA-Public Use
  Company Number: US-ELI_LILLY_AND_COMPANY-US201201003890

PATIENT
  Age: 63 Year
  Sex: Male

DRUGS (6)
  1. EFFIENT [Suspect]
     Indication: PERCUTANEOUS CORONARY INTERVENTION
     Dosage: 60 MG, LOADING DOSE
  2. ASPIRIN [Concomitant]
     Dosage: 81 MG, UNKNOWN
  3. ASPIRIN [Concomitant]
     Indication: PERCUTANEOUS CORONARY INTERVENTION
     Dosage: 325 MG, QD
  4. WARFARIN SODIUM [Concomitant]
     Dosage: 5 MG, UNKNOWN
  5. EFFIENT [Suspect]
     Dosage: 10 MG, UNK
  6. EFFIENT [Suspect]
     Dosage: 5 MG, QD

REACTIONS (3)
  - HAEMATOMA [None]
  - DEEP VEIN THROMBOSIS [None]
  - GINGIVAL BLEEDING [None]
